FAERS Safety Report 9258296 (Version 1)
Quarter: 2013Q1

REPORT INFORMATION
  Report Type: Spontaneous
  Country: US (occurrence: None)
  Receive Date: 20121212
  Receipt Date: 20121212
  Transmission Date: 20140127
  Serious: No
  Sender: FDA-Public Use
  Company Number: 1210USA002223

PATIENT
  Sex: Female
  Weight: 51.2 kg

DRUGS (9)
  1. VICTRELIS [Suspect]
     Dosage: 4 DF, Q8H, ORAL
  2. PEGASYS [Suspect]
  3. RIBAPAK [Suspect]
  4. CELEBREX [Concomitant]
  5. XANAX [Concomitant]
  6. VYVANSE [Concomitant]
  7. OMEPRAZOLE [Concomitant]
  8. SUDAFED 24 HOUR [Concomitant]
  9. AMITRIPTYLINE [Concomitant]

REACTIONS (7)
  - Disturbance in attention [None]
  - White blood cell count decreased [None]
  - Fatigue [None]
  - Diarrhoea [None]
  - Dysgeusia [None]
  - Alopecia [None]
  - Dry skin [None]
